FAERS Safety Report 6613203-2 (Version None)
Quarter: 2010Q1

REPORT INFORMATION
  Report Type: 
  Country: None (occurrence: None)
  Receive Date: 20100225
  Receipt Date: 20100212
  Transmission Date: 20100710
  Serious: Yes (Hospitalization)
  Sender: FDA-Public Use
  Company Number: MIN-00584

PATIENT
  Age: 23 Year
  Sex: Female

DRUGS (2)
  1. MINOCYCLINE HCL [Suspect]
     Indication: ACNE
     Dosage: 100 MG, DAILY
     Dates: start: 20061101
  2. MINOCYCLINE HCL [Suspect]
     Indication: ACNE

REACTIONS (12)
  - ARTHRALGIA [None]
  - DERMATOMYOSITIS [None]
  - DRUG INEFFECTIVE [None]
  - ERYTHEMA [None]
  - ERYTHEMA NODOSUM [None]
  - FATIGUE [None]
  - INDURATION [None]
  - MUSCULAR WEAKNESS [None]
  - MYALGIA [None]
  - MYOPATHY [None]
  - OEDEMA PERIPHERAL [None]
  - PAIN [None]
